FAERS Safety Report 4483898-0 (Version None)
Quarter: 2004Q4

REPORT INFORMATION
  Report Type: 
  Country: None (occurrence: None)
  Receive Date: 20041020
  Receipt Date: 20041001
  Transmission Date: 20050328
  Serious: Yes (Disabling)
  Sender: FDA-Public Use
  Company Number: USA041079855

PATIENT
  Age: 54 Year
  Sex: Male

DRUGS (3)
  1. INSULIN-INSULIN-ANIMAL (UNKNOWN FORMULATION) (INUL [Suspect]
     Dates: start: 19540101, end: 20000101
  2. HUMALOG [Suspect]
     Dates: start: 20000101
  3. LANTUS [Concomitant]

REACTIONS (9)
  - BLOOD GLUCOSE INCREASED [None]
  - BONE DISORDER [None]
  - INJECTION SITE BURNING [None]
  - MEDICATION ERROR [None]
  - PAIN OF SKIN [None]
  - PHARMACEUTICAL PRODUCT COMPLAINT [None]
  - RETINOPATHY [None]
  - VISUAL DISTURBANCE [None]
  - VISUAL FIELD DEFECT [None]
